FAERS Safety Report 24263892 (Version 1)
Quarter: 2024Q3

REPORT INFORMATION
  Report Type: Spontaneous
  Country: US (occurrence: US)
  Receive Date: 20240829
  Receipt Date: 20240829
  Transmission Date: 20241016
  Serious: No
  Sender: SANOFI AVENTIS
  Company Number: US-SA-SAC20240822000108

PATIENT
  Age: 60 Year
  Sex: Male

DRUGS (1)
  1. DUPIXENT [Suspect]
     Active Substance: DUPILUMAB
     Indication: Neurodermatitis
     Dosage: 300 MG, QOW
     Route: 058

REACTIONS (10)
  - Eczema [Unknown]
  - Sleep disorder [Unknown]
  - Skin haemorrhage [Unknown]
  - Pruritus [Unknown]
  - Discomfort [Unknown]
  - Emotional distress [Unknown]
  - Dry skin [Unknown]
  - Skin exfoliation [Unknown]
  - Quality of life decreased [Unknown]
  - Neurodermatitis [Unknown]

NARRATIVE: CASE EVENT DATE: 20240801
